FAERS Safety Report 9759968 (Version 1)
Quarter: 2013Q4

REPORT INFORMATION
  Report Type: Spontaneous
  Country: US (occurrence: US)
  Receive Date: 20131216
  Receipt Date: 20131216
  Transmission Date: 20140711
  Serious: No
  Sender: FDA-Public Use
  Company Number: US-B.I. PHARMACEUTICALS,INC./RIDGEFIELD-2013-BI-40190BP

PATIENT
  Age: 66 Year
  Sex: Female

DRUGS (13)
  1. PRADAXA [Suspect]
     Indication: ATRIAL FIBRILLATION
     Dosage: 300 MG
     Route: 048
     Dates: start: 20131112
  2. CARVEDILOL [Concomitant]
     Indication: CARDIAC DISORDER
     Dosage: 6.25 MG
     Route: 048
  3. AMIODARONE [Concomitant]
     Indication: ATRIAL FIBRILLATION
     Dosage: 400 MG
     Route: 048
     Dates: start: 2012
  4. ATORVASTATIN [Concomitant]
     Indication: BLOOD CHOLESTEROL INCREASED
     Dosage: 10 MG
     Route: 048
  5. FUROSEMIDE [Concomitant]
     Indication: JOINT SWELLING
     Dosage: 40 MG
     Route: 048
  6. PANTOPRAZOLE [Concomitant]
     Indication: DYSPEPSIA
     Dosage: 40 MG
     Route: 048
  7. PANTOPRAZOLE [Concomitant]
     Indication: GASTROOESOPHAGEAL REFLUX DISEASE
  8. POTASSIUM CHLORIDE [Concomitant]
     Dosage: 20 MG
     Route: 048
  9. SPIRONOLACTONE [Concomitant]
     Indication: LOCAL SWELLING
     Dosage: 25 MG
     Route: 048
  10. SPIRONOLACTONE [Concomitant]
     Indication: JOINT SWELLING
  11. VITAMIN C [Concomitant]
     Indication: SUPPLEMENTATION THERAPY
     Route: 048
  12. XANAX [Concomitant]
     Indication: ANXIETY
     Dosage: 1 MG
     Route: 048
  13. ZOLOFT [Concomitant]
     Indication: DEPRESSION
     Dosage: 100 MG
     Route: 048

REACTIONS (4)
  - Head injury [Recovered/Resolved]
  - Balance disorder [Not Recovered/Not Resolved]
  - Feeling abnormal [Not Recovered/Not Resolved]
  - Fall [Recovered/Resolved]
